FAERS Safety Report 6627154-0 (Version None)
Quarter: 2010Q1

REPORT INFORMATION
  Report Type: 
  Country: None (occurrence: None)
  Receive Date: 20100311
  Receipt Date: 20091123
  Transmission Date: 20100710
  Serious: No
  Sender: FDA-Public Use
  Company Number: A0814325A

PATIENT
  Age: 48 Year
  Sex: Male

DRUGS (1)
  1. NICOTINE POLACRILEX [Suspect]

REACTIONS (15)
  - DYSARTHRIA [None]
  - DYSGEUSIA [None]
  - DYSPHAGIA [None]
  - GINGIVAL BLEEDING [None]
  - GINGIVAL ERYTHEMA [None]
  - GLOSSODYNIA [None]
  - INTENTIONAL DRUG MISUSE [None]
  - ORAL PAIN [None]
  - OROPHARYNGEAL PAIN [None]
  - PHARYNGEAL OEDEMA [None]
  - SWOLLEN TONGUE [None]
  - THERMAL BURN [None]
  - THROAT IRRITATION [None]
  - TONGUE BLISTERING [None]
  - TONGUE HAEMORRHAGE [None]
